FAERS Safety Report 10211701 (Version 1)
Quarter: 2014Q2

REPORT INFORMATION
  Report Type: Report from Study
  Country: FR (occurrence: FR)
  Receive Date: 20140602
  Receipt Date: 20140602
  Transmission Date: 20141212
  Serious: Yes (Hospitalization)
  Sender: FDA-Public Use
  Company Number: FR-DSJP-DSE-2014-109378

PATIENT
  Sex: 0

DRUGS (2)
  1. COOLMETEC [Suspect]
     Indication: HYPERTENSION
     Dosage: ?/12.5 MG, QD
     Route: 048
     Dates: start: 201011, end: 20110430
  2. AXELER [Suspect]
     Indication: HYPERTENSION
     Dosage: ?/10 MG, QD
     Dates: start: 201211, end: 20130207

REACTIONS (4)
  - Weight decreased [Unknown]
  - Colitis microscopic [Unknown]
  - Diarrhoea [Recovering/Resolving]
  - Abdominal pain [Unknown]
